FAERS Safety Report 23874762 (Version 1)
Quarter: 2024Q2

REPORT INFORMATION
  Report Type: Spontaneous
  Country: US (occurrence: US)
  Receive Date: 20240520
  Receipt Date: 20240520
  Transmission Date: 20240716
  Serious: No
  Sender: FDA-Public Use
  Company Number: US-HORIZON THERAPEUTICS-HZN-2024-003688

PATIENT

DRUGS (1)
  1. TEPEZZA [Suspect]
     Active Substance: TEPROTUMUMAB-TRBW
     Indication: Endocrine ophthalmopathy
     Dosage: LAST INFUSION
     Route: 042
     Dates: start: 202211

REACTIONS (5)
  - Symptom recurrence [Unknown]
  - Hair disorder [Unknown]
  - Fatigue [Unknown]
  - Muscle spasms [Unknown]
  - Hypoacusis [Recovered/Resolved]
